FAERS Safety Report 10911858 (Version 2)
Quarter: 2015Q2

REPORT INFORMATION
  Report Type: Spontaneous
  Country: US (occurrence: US)
  Receive Date: 20150313
  Receipt Date: 20150416
  Transmission Date: 20150821
  Serious: Yes (Hospitalization, Other)
  Sender: FDA-Public Use
  Company Number: US-ROCHE-1535490

PATIENT
  Age: 60 Year
  Sex: Female
  Weight: 54.48 kg

DRUGS (18)
  1. INDERAL [Concomitant]
     Active Substance: PROPRANOLOL HYDROCHLORIDE
     Route: 048
  2. FLONASE [Concomitant]
     Active Substance: FLUTICASONE PROPIONATE
     Dosage: ONE SPRAY IN EACH NOSTRIL
     Route: 065
  3. VOLTAREN [Concomitant]
     Active Substance: DICLOFENAC SODIUM
     Route: 048
  4. FLEXERIL [Concomitant]
     Active Substance: CYCLOBENZAPRINE HYDROCHLORIDE
     Dosage: PRN
     Route: 048
  5. SINGULAIR [Concomitant]
     Active Substance: MONTELUKAST SODIUM
     Route: 048
  6. XANAX [Concomitant]
     Active Substance: ALPRAZOLAM
     Dosage: PRN
     Route: 048
  7. SYMBICORT [Concomitant]
     Active Substance: BUDESONIDE\FORMOTEROL FUMARATE DIHYDRATE
     Dosage: FORM STRENGTH: 160-4.5 MCG
     Route: 048
  8. VFEND [Concomitant]
     Active Substance: VORICONAZOLE
     Dosage: 2 TABLETS
     Route: 048
  9. TRENTAL [Concomitant]
     Active Substance: PENTOXIFYLLINE
     Route: 048
  10. XOLAIR [Suspect]
     Active Substance: OMALIZUMAB
     Indication: ASTHMA
     Route: 058
     Dates: start: 20141201, end: 20150205
  11. PROAIR HFA [Concomitant]
     Active Substance: ALBUTEROL SULFATE
     Dosage: PRN
     Route: 065
  12. PRILOSEC [Concomitant]
     Active Substance: OMEPRAZOLE MAGNESIUM
     Route: 048
  13. EFFEXOR XR [Concomitant]
     Active Substance: VENLAFAXINE HYDROCHLORIDE
     Route: 048
  14. ADALAT CC [Concomitant]
     Active Substance: NIFEDIPINE
     Route: 048
  15. ESTROGEN, CONJUGATED [Concomitant]
  16. QVAR [Concomitant]
     Active Substance: BECLOMETHASONE DIPROPIONATE
     Route: 065
  17. PAXIL (UNITED STATES) [Concomitant]
     Route: 048
  18. DESYREL [Concomitant]
     Active Substance: TRAZODONE HYDROCHLORIDE
     Route: 048

REACTIONS (8)
  - Respiratory distress [Recovered/Resolved]
  - Flushing [Unknown]
  - Aphasia [Recovered/Resolved]
  - Epigastric discomfort [Recovered/Resolved]
  - Tremor [Recovered/Resolved]
  - Chest discomfort [Unknown]
  - Hypersensitivity [Recovered/Resolved]
  - Tachycardia [Recovered/Resolved]

NARRATIVE: CASE EVENT DATE: 20150205
